FAERS Safety Report 5331902-X (Version None)
Quarter: 2007Q2

REPORT INFORMATION
  Report Type: 
  Country: None (occurrence: None)
  Receive Date: 20070306
  Receipt Date: 20060615
  Transmission Date: 20071010
  Serious: Yes (Hospitalization)
  Sender: FDA-Public Use
  Company Number: A03200603924

PATIENT
  Age: 57 Year
  Sex: Male
  Weight: 99.32 kg

DRUGS (7)
  1. PLAVIX [Suspect]
     Indication: CORONARY ARTERIAL STENT INSERTION
     Dosage: 75 MG QD - ORAL
     Route: 048
     Dates: start: 20060330, end: 20060501
  2. PLAVIX [Suspect]
     Indication: POSTOPERATIVE CARE
     Dosage: 75 MG QD - ORAL
     Route: 048
     Dates: start: 20060330, end: 20060501
  3. ACETYLSALICYLIC ACID SRT [Concomitant]
  4. RABEPRAZOLE SOIDUM [Concomitant]
  5. RAMIPRIL [Concomitant]
  6. SIMVASTATIN [Concomitant]
  7. METOPROLOL SUCCINATE [Concomitant]

REACTIONS (7)
  - ANAEMIA [None]
  - ANOREXIA [None]
  - DIZZINESS [None]
  - FATIGUE [None]
  - GASTRITIS [None]
  - HAEMORRHAGE [None]
  - UPPER RESPIRATORY TRACT INFECTION [None]
